FAERS Safety Report 6802550-7 (Version None)
Quarter: 2010Q2

REPORT INFORMATION
  Report Type: 
  Country: None (occurrence: None)
  Receive Date: 20100628
  Receipt Date: 20100621
  Transmission Date: 20101027
  Serious: Yes (Hospitalization)
  Sender: FDA-Public Use
  Company Number: DE-WYE-H08549709

PATIENT
  Age: 73 Year
  Sex: Male
  Weight: 70 kg

DRUGS (12)
  1. PANTOZOL [Suspect]
     Indication: GASTRITIS EROSIVE
     Route: 048
     Dates: start: 20081217, end: 20081223
  2. PANTOZOL [Suspect]
     Indication: HELICOBACTER INFECTION
  3. AMOXIHEXAL [Suspect]
     Indication: GASTRITIS EROSIVE
     Route: 048
     Dates: start: 20081217, end: 20081223
  4. AMOXIHEXAL [Suspect]
     Indication: HELICOBACTER INFECTION
  5. ACTRAPHANE HM [Concomitant]
     Indication: TYPE 2 DIABETES MELLITUS
     Dosage: 10 UNIT EVERY 1 DAY
     Route: 058
  6. NITRENDIPINE [Concomitant]
     Indication: HYPERTENSION
     Route: 048
  7. ATACAND [Concomitant]
     Indication: HYPERTENSION
     Route: 048
  8. BISOPROLOL FUMARATE [Concomitant]
     Indication: HYPERTENSION
     Route: 048
  9. DELIX [Concomitant]
     Indication: HYPERTENSION
     Route: 048
  10. CLARITHROMYCIN [Suspect]
     Indication: GASTRITIS EROSIVE
     Route: 048
     Dates: start: 20081217, end: 20081223
  11. CLARITHROMYCIN [Suspect]
     Indication: HELICOBACTER INFECTION
  12. ALLOPURINOL [Concomitant]
     Indication: HYPERURICAEMIA
     Route: 048

REACTIONS (1)
  - DRUG ERUPTION [None]
